FAERS Safety Report 5521775-4 (Version None)
Quarter: 2007Q4

REPORT INFORMATION
  Report Type: 
  Country: None (occurrence: None)
  Receive Date: 20071120
  Receipt Date: 20071112
  Transmission Date: 20080405
  Serious: Yes (Hospitalization, Other)
  Sender: FDA-Public Use
  Company Number: JP-JNJFOC-20040300385

PATIENT
  Sex: Male
  Weight: 54 kg

DRUGS (15)
  1. REMICADE [Suspect]
     Route: 042
  2. REMICADE [Suspect]
     Indication: RHEUMATOID ARTHRITIS
     Route: 042
  3. ALPROSTADIL [Concomitant]
  4. FAMOTIDINE [Concomitant]
  5. LOXOPROFEN SODIUM [Concomitant]
  6. MAGNESIUM OXIDE [Concomitant]
  7. MECOBALAMIN [Concomitant]
  8. METHOTREXATE [Concomitant]
  9. MIZORIBINE [Concomitant]
  10. PREDNISOLONE [Concomitant]
  11. SULFASALAZINE [Concomitant]
  12. SARPOGRELATE HYDROCHLORIDE [Concomitant]
  13. WARFARIN POTASSIUM [Concomitant]
  14. LAC 8 [Concomitant]
  15. ISOTONIC SODIUM CHLORIDE SOLUTION [Concomitant]

REACTIONS (1)
  - LEG AMPUTATION [None]
